FAERS Safety Report 4922651-8 (Version None)
Quarter: 2006Q1

REPORT INFORMATION
  Report Type: 
  Country: None (occurrence: None)
  Receive Date: 20060224
  Receipt Date: 20060215
  Transmission Date: 20060701
  Serious: Yes (Other)
  Sender: FDA-Public Use
  Company Number: FR-BRISTOL-MYERS SQUIBB COMPANY-13284666

PATIENT
  Age: 53 Year
  Sex: Male
  Weight: 73 kg

DRUGS (4)
  1. REYATAZ [Suspect]
     Indication: HIV INFECTION
     Route: 048
     Dates: start: 20050418
  2. NORVIR [Suspect]
     Indication: HIV INFECTION
     Dates: start: 20050418
  3. VIREAD [Suspect]
     Indication: HIV INFECTION
     Dates: start: 20050418
  4. EMTRIVA [Suspect]
     Indication: HIV INFECTION
     Dates: start: 20050418

REACTIONS (1)
  - SPINAL FRACTURE [None]
